FAERS Safety Report 21548807 (Version 1)
Quarter: 2022Q4

REPORT INFORMATION
  Report Type: Spontaneous
  Country: US (occurrence: None)
  Receive Date: 20221102
  Receipt Date: 20221102
  Transmission Date: 20230112
  Serious: Yes (Other)
  Sender: FDA-Public Use
  Company Number: None

PATIENT
  Age: 7 Year
  Sex: Female

DRUGS (1)
  1. CEFDINIR [Suspect]
     Active Substance: CEFDINIR
     Dosage: OTHER STRENGTH : 250 MG/5 ML;?
     Dates: start: 20220830, end: 20220901

REACTIONS (1)
  - Tic [None]

NARRATIVE: CASE EVENT DATE: 20220831
